FAERS Safety Report 7305287-3 (Version None)
Quarter: 2011Q1

REPORT INFORMATION
  Report Type: 
  Country: None (occurrence: None)
  Receive Date: 20110222
  Receipt Date: 20110216
  Transmission Date: 20110831
  Serious: Yes (Life-Threatening, Other)
  Sender: FDA-Public Use
  Company Number: FI-PFIZER INC-2011033986

PATIENT
  Age: 65 Year
  Sex: Male

DRUGS (6)
  1. XANOR - SLOW RELEASE [Concomitant]
     Dosage: UNK
     Route: 048
     Dates: start: 20100525
  2. XANOR [Concomitant]
     Dosage: UNK
     Route: 048
     Dates: start: 20100525
  3. LYRICA [Suspect]
     Indication: ANXIETY
     Dosage: UNK
     Route: 048
     Dates: start: 20100929, end: 20101124
  4. SEPRAM [Concomitant]
     Dosage: UNK
     Route: 048
     Dates: start: 20100504, end: 20101012
  5. AMLODIPINE BESILATE [Concomitant]
     Indication: HYPERTENSION
     Dosage: UNK
     Route: 048
     Dates: start: 20030101
  6. ATORVASTATIN CALCIUM [Concomitant]
     Indication: HYPERCHOLESTEROLAEMIA
     Dosage: UNK
     Route: 048
     Dates: start: 20030101

REACTIONS (2)
  - ROAD TRAFFIC ACCIDENT [None]
  - SUDDEN ONSET OF SLEEP [None]
